FAERS Safety Report 20744883 (Version 4)
Quarter: 2022Q3

REPORT INFORMATION
  Report Type: Spontaneous
  Country: US (occurrence: US)
  Receive Date: 20220425
  Receipt Date: 20220727
  Transmission Date: 20221027
  Serious: Yes (Other)
  Sender: FDA-Public Use
  Company Number: US-JNJFOC-20220436393

PATIENT
  Sex: Female
  Weight: 56.750 kg

DRUGS (2)
  1. REMICADE [Suspect]
     Active Substance: INFLIXIMAB
     Indication: Crohn^s disease
     Dosage: RECEIVED 3 DOSES
     Route: 041
     Dates: start: 20220211
  2. REMICADE [Suspect]
     Active Substance: INFLIXIMAB
     Route: 041

REACTIONS (2)
  - Crohn^s disease [Not Recovered/Not Resolved]
  - Therapeutic product effect decreased [Unknown]
